FAERS Safety Report 17645699 (Version 1)
Quarter: 2020Q2

REPORT INFORMATION
  Report Type: Spontaneous
  Country: SI (occurrence: SI)
  Receive Date: 20200408
  Receipt Date: 20200408
  Transmission Date: 20200713
  Serious: Yes (Other)
  Sender: FDA-Public Use
  Company Number: SI-ABBVIE-20K-261-3345689-00

PATIENT
  Age: 69 Year
  Sex: Female

DRUGS (3)
  1. RESOCHIN [Concomitant]
     Active Substance: NIFEDIPINE
     Indication: PRODUCT USED FOR UNKNOWN INDICATION
     Dosage: 500/12
     Route: 048
     Dates: start: 20200323, end: 20200328
  2. KALETRA [Suspect]
     Active Substance: LOPINAVIR\RITONAVIR
     Indication: CORONAVIRUS INFECTION
     Dosage: 200/100
     Route: 048
     Dates: start: 20200323, end: 20200326
  3. PARACETAMOL [Concomitant]
     Active Substance: ACETAMINOPHEN
     Indication: PYREXIA
     Dosage: 500-1000 AS NEEDED PERORAL OR INTRAVENOUS

REACTIONS (7)
  - Respiratory failure [Unknown]
  - Pneumonia viral [Unknown]
  - Therapeutic response unexpected [Recovered/Resolved]
  - Gastric disorder [Unknown]
  - Vomiting [Recovered/Resolved]
  - Off label use [Recovered/Resolved]
  - Nausea [Recovered/Resolved]

NARRATIVE: CASE EVENT DATE: 202003
